FAERS Safety Report 19543950 (Version 1)
Quarter: 2021Q3

REPORT INFORMATION
  Report Type: Spontaneous
  Country: US (occurrence: US)
  Receive Date: 20210713
  Receipt Date: 20210713
  Transmission Date: 20211014
  Serious: Yes (Hospitalization)
  Sender: FDA-Public Use
  Company Number: US-MYLANLABS-2021M1041535

PATIENT
  Age: 41 Year
  Sex: Male

DRUGS (15)
  1. LORAZEPAM. [Concomitant]
     Active Substance: LORAZEPAM
     Indication: PRODUCT USED FOR UNKNOWN INDICATION
     Dosage: 1 MILLIGRAM
     Route: 042
  2. MORPHINE [Interacting]
     Active Substance: MORPHINE
     Dosage: 60 MILLIGRAM, THREE TIMES DAILY, BEFORE BEING DISCHARGED TO HOME
     Route: 048
  3. MORPHINE [Interacting]
     Active Substance: MORPHINE
     Dosage: 167 MILLIGRAM, TOTAL MORPHINE DOSE IN THE FIRST 13H AFTER DISCHARGE FROM THE RECOVERY UNIT
     Route: 065
  4. OXYCODONE [Interacting]
     Active Substance: OXYCODONE
     Dosage: 10 MILLIGRAM, AS NECESSARY, BEFORE BEING DISCHARGED TO HOME
     Route: 065
  5. CLONIDINE. [Concomitant]
     Active Substance: CLONIDINE
     Indication: PRODUCT USED FOR UNKNOWN INDICATION
     Dosage: 100 MICROGRAM
     Route: 065
  6. MORPHINE [Interacting]
     Active Substance: MORPHINE
     Indication: PAIN MANAGEMENT
     Dosage: 10 MILLIGRAM
     Route: 065
  7. FENTANYL. [Interacting]
     Active Substance: FENTANYL
     Dosage: 500 MICROGRAM, BEFORE BEING TRANSFER TO THE POSTSURGICAL UNIT
     Route: 065
  8. BUPRENORPHINE. [Suspect]
     Active Substance: BUPRENORPHINE
     Indication: BACK PAIN
     Dosage: 16 MILLIGRAM, QD, IN DIVIDED DOSES
     Route: 060
  9. HYDROMORPHONE [Interacting]
     Active Substance: HYDROMORPHONE
     Dosage: 0.5 MILLIGRAM, QH, RECEIVED A TOTAL OF 25.8MG IV HYDROMORPHONE IN 8H
     Route: 042
  10. MORPHINE [Interacting]
     Active Substance: MORPHINE
     Dosage: 50 MILLIGRAM, BEFORE BEING TRANSFER TO THE POSTSURGICAL UNIT
     Route: 065
  11. HYDROMORPHONE [Interacting]
     Active Substance: HYDROMORPHONE
     Indication: PAIN MANAGEMENT
     Dosage: 0.5 MILLIGRAM, EVERY 6 MINUTES
     Route: 040
  12. REMIFENTANIL [Concomitant]
     Active Substance: REMIFENTANIL
     Indication: GENERAL ANAESTHESIA
     Dosage: UNK
     Route: 065
  13. FENTANYL. [Interacting]
     Active Substance: FENTANYL
     Indication: PAIN MANAGEMENT
     Dosage: 50 MICROGRAM
     Route: 065
  14. OXYCODONE [Interacting]
     Active Substance: OXYCODONE
     Indication: PAIN MANAGEMENT
     Dosage: 20 MILLIGRAM
     Route: 048
  15. KETOROLAC [Concomitant]
     Active Substance: KETOROLAC TROMETHAMINE
     Indication: PRODUCT USED FOR UNKNOWN INDICATION
     Dosage: 30 MILLIGRAM
     Route: 065

REACTIONS (2)
  - Inadequate analgesia [Recovered/Resolved]
  - Drug interaction [Recovered/Resolved]
